FAERS Safety Report 6902069-9 (Version None)
Quarter: 2010Q3

REPORT INFORMATION
  Report Type: 
  Country: None (occurrence: None)
  Receive Date: 20100803
  Receipt Date: 20080423
  Transmission Date: 20110219
  Serious: Yes (Other)
  Sender: FDA-Public Use
  Company Number: US-PFIZER INC-2008036565

PATIENT
  Sex: Female
  Weight: 72.6 kg

DRUGS (4)
  1. LYRICA [Suspect]
     Indication: PAIN
     Dates: start: 20080317
  2. AMPHETAMINE SULFATE [Concomitant]
  3. XANAX [Concomitant]
  4. VICODIN [Concomitant]

REACTIONS (7)
  - DISORIENTATION [None]
  - EUPHORIC MOOD [None]
  - FATIGUE [None]
  - IMPAIRED DRIVING ABILITY [None]
  - MEMORY IMPAIRMENT [None]
  - SEDATION [None]
  - SOMNOLENCE [None]
